FAERS Safety Report 5531513-7 (Version None)
Quarter: 2007Q4

REPORT INFORMATION
  Report Type: 
  Country: None (occurrence: None)
  Receive Date: 20071128
  Receipt Date: 20071128
  Transmission Date: 20080405
  Serious: Yes (Hospitalization)
  Sender: FDA-Public Use
  Company Number: None

PATIENT
  Age: 77 Year
  Sex: Female

DRUGS (3)
  1. WARFARIN SODIUM [Suspect]
     Indication: ATRIAL FIBRILLATION
     Dosage: 5 MG/7.5 MG - 7.5 ON DAILY PO
     Route: 048
  2. WARFARIN SODIUM [Suspect]
     Indication: JOINT ARTHROPLASTY
     Dosage: 5 MG/7.5 MG - 7.5 ON DAILY PO
     Route: 048
  3. ASPIRIN [Suspect]
     Indication: CARDIAC DISORDER
     Dosage: 81 DAILY PO
     Route: 048

REACTIONS (6)
  - COLONOSCOPY [None]
  - HAEMATOCHEZIA [None]
  - HAEMOGLOBIN DECREASED [None]
  - INTERNATIONAL NORMALISED RATIO INCREASED [None]
  - JOINT ARTHROPLASTY [None]
  - POLYPECTOMY [None]
